FAERS Safety Report 7482353-3 (Version None)
Quarter: 2011Q2

REPORT INFORMATION
  Report Type: 
  Country: None (occurrence: None)
  Receive Date: 20110516
  Receipt Date: 20110510
  Transmission Date: 20111010
  Serious: Yes (Other)
  Sender: FDA-Public Use
  Company Number: DE-PFIZER INC-2011083042

PATIENT
  Age: 31 Year
  Sex: Female
  Weight: 65 kg

DRUGS (2)
  1. VENLAFAXINE [Suspect]
     Indication: DEPRESSION
     Dosage: 37.5 MG, UNK
     Dates: start: 20110222, end: 20110401
  2. VENLAFAXINE [Suspect]
     Dosage: 150 MG, UNK

REACTIONS (3)
  - HAEMORRHAGIC DIATHESIS [None]
  - MENORRHAGIA [None]
  - CONTUSION [None]
